FAERS Safety Report 15898608 (Version 1)
Quarter: 2019Q1

REPORT INFORMATION
  Report Type: Spontaneous
  Country: US (occurrence: US)
  Receive Date: 20190201
  Receipt Date: 20190201
  Transmission Date: 20190417
  Serious: No
  Sender: FDA-Public Use
  Company Number: US-TEVA-2019-US-1004246

PATIENT
  Sex: Female

DRUGS (8)
  1. BENICAR [Concomitant]
     Active Substance: OLMESARTAN MEDOXOMIL
  2. VITAMIN B12 [Concomitant]
     Active Substance: CYANOCOBALAMIN
  3. COPAXONE [Suspect]
     Active Substance: GLATIRAMER ACETATE
     Dosage: STARTED AROUND 3.5 YEARS AGO
     Route: 065
  4. HYDROCHLOROTHIAZIDE. [Concomitant]
     Active Substance: HYDROCHLOROTHIAZIDE
  5. COPAXONE [Suspect]
     Active Substance: GLATIRAMER ACETATE
     Indication: MULTIPLE SCLEROSIS
     Dosage: FORM STRENGTH: UNKNOWN
     Route: 065
     Dates: end: 201901
  6. VITAMIN D3 [Concomitant]
     Active Substance: CHOLECALCIFEROL
  7. LINZESS [Concomitant]
     Active Substance: LINACLOTIDE
  8. GABAPENTIN. [Concomitant]
     Active Substance: GABAPENTIN

REACTIONS (9)
  - Oral mucosal blistering [Recovered/Resolved]
  - Injection site reaction [Unknown]
  - Feeding disorder [Recovered/Resolved]
  - Oral pain [Recovered/Resolved]
  - Rash [Unknown]
  - Lip pain [Recovered/Resolved]
  - Erythema [Recovered/Resolved]
  - Thermal burn [Recovered/Resolved]
  - Mouth swelling [Recovered/Resolved]
